FAERS Safety Report 5394655-5 (Version None)
Quarter: 2007Q3

REPORT INFORMATION
  Report Type: 
  Country: None (occurrence: None)
  Receive Date: 20070720
  Receipt Date: 20070710
  Transmission Date: 20080115
  Serious: Yes (Hospitalization, Other)
  Sender: FDA-Public Use
  Company Number: 2007US-08524

PATIENT
  Sex: Female

DRUGS (2)
  1. ISOTRETINOIN [Suspect]
     Indication: ACNE CYSTIC
     Dosage: SEE IMAGE
     Route: 048
     Dates: end: 20070601
  2. ISOTRETINOIN [Suspect]
     Dosage: 40 MG, QD
     Dates: end: 20070601

REACTIONS (2)
  - LIPASE INCREASED [None]
  - STOMACH DISCOMFORT [None]
